FAERS Safety Report 20022464 (Version 1)
Quarter: 2021Q4

REPORT INFORMATION
  Report Type: Spontaneous
  Country: US (occurrence: US)
  Receive Date: 20211102
  Receipt Date: 20211102
  Transmission Date: 20220303
  Serious: Yes (Life-Threatening, Hospitalization, Other)
  Sender: FDA-Public Use
  Company Number: US-MACLEODS PHARMACEUTICALS US LTD-MAC2021033184

PATIENT

DRUGS (3)
  1. LIDOCAINE [Suspect]
     Active Substance: LIDOCAINE
     Indication: Local anaesthesia
     Dosage: 3 MILLILITER, SINGLE (10 UG/ML) (1 PERCENT LIDOCAINE)
     Route: 065
  2. OXYMETAZOLINE [Concomitant]
     Active Substance: OXYMETAZOLINE
     Indication: Product used for unknown indication
     Dosage: UNK, (PLEDGETS WERE PLACED IN BILATERAL NASAL CAVITIES)
     Route: 065
  3. EPINEPHRINE [Concomitant]
     Active Substance: EPINEPHRINE
     Indication: Product used for unknown indication
     Dosage: 3 MILLILITER, SINGLE (10 UG/ML),INJECTION OF 3 ML OF 1% LIDOCAINE WITH 1:100,000 EPINEPHRINE INTO TH
     Route: 065

REACTIONS (6)
  - Pulmonary oedema [Recovering/Resolving]
  - Left ventricular dysfunction [Recovering/Resolving]
  - Trigemino-cardiac reflex [Recovering/Resolving]
  - Sinus bradycardia [Recovered/Resolved]
  - Electrocardiogram ST segment depression [Recovering/Resolving]
  - Cardiac arrest [Recovered/Resolved]
